FAERS Safety Report 25842683 (Version 1)
Quarter: 2025Q3

REPORT INFORMATION
  Report Type: Spontaneous
  Country: JP (occurrence: JP)
  Receive Date: 20250924
  Receipt Date: 20250924
  Transmission Date: 20251021
  Serious: Yes (Hospitalization, Other)
  Sender: NOVO NORDISK
  Company Number: JP-NOVOPROD-1523899

PATIENT
  Age: 7 Decade
  Sex: Female

DRUGS (1)
  1. RYZODEG 70/30 [Suspect]
     Active Substance: INSULIN ASPART\INSULIN DEGLUDEC
     Indication: Product used for unknown indication
     Dosage: 27 IU, QD(15 UNITS IN THE MORNING AND 12 UNITS IN THE EVENING )
     Route: 058

REACTIONS (1)
  - Femur fracture [Unknown]
